FAERS Safety Report 4309733-9 (Version None)
Quarter: 2004Q1

REPORT INFORMATION
  Report Type: 
  Country: None (occurrence: None)
  Receive Date: 20040301
  Receipt Date: 20030826
  Transmission Date: 20041129
  Serious: Yes (Hospitalization)
  Sender: FDA-Public Use
  Company Number: 03P-163-0230329-00

PATIENT
  Age: 54 Year
  Sex: Male
  Weight: 91.6266 kg

DRUGS (16)
  1. TRICOR [Suspect]
     Indication: HYPERLIPIDAEMIA
     Dosage: 160 MG, 1 IN  1 D
     Dates: start: 20030505, end: 20030730
  2. ABT-378/RITONAVIR (ABT-378)(LOPINAVIR/RITONAVIR) (LOPINAVIR/RITONAVIR) [Suspect]
     Indication: HIV INFECTION
     Dosage: SEE IMAGE
     Route: 048
     Dates: start: 20021113, end: 20030804
  3. ABT-378/RITONAVIR (ABT-378)(LOPINAVIR/RITONAVIR) (LOPINAVIR/RITONAVIR) [Suspect]
     Indication: HIV INFECTION
     Dosage: SEE IMAGE
     Route: 048
     Dates: start: 20021113, end: 20030804
  4. AVANDIA [Suspect]
     Indication: DIABETES MELLITUS
     Dosage: 2 IN 1 D
     Dates: start: 20030505, end: 20030730
  5. TENOFOVIR DF/TDF (TENOFOVIR) [Suspect]
     Indication: HIV INFECTION
     Dates: end: 20030804
  6. EMTRICITABINE/FTC (EMTRICITABINE) [Suspect]
     Indication: HIV INFECTION
     Dates: end: 20030804
  7. ACETYLSALICYLIC ACID [Concomitant]
  8. ZITHROMAX [Concomitant]
  9. MYCOTUSS [Concomitant]
  10. METOPROLOL SUCCINATE [Concomitant]
  11. BUPROPION HYDROCHLORIDE [Concomitant]
  12. TRAZODONE HCL [Concomitant]
  13. TEMAZEPAM [Concomitant]
  14. MULTI-VITAMINS [Concomitant]
  15. PREDNISONE [Concomitant]
  16. SODIUM BICARBONATE [Concomitant]

REACTIONS (12)
  - ANAEMIA [None]
  - DEPRESSION [None]
  - DIABETES MELLITUS [None]
  - DIALYSIS [None]
  - HAEMATEMESIS [None]
  - HYPERLIPIDAEMIA [None]
  - HYPERMAGNESAEMIA [None]
  - HYPOCALCAEMIA [None]
  - METABOLIC ACIDOSIS [None]
  - NEPHRITIS INTERSTITIAL [None]
  - RENAL FAILURE [None]
  - RENAL TUBULAR NECROSIS [None]
